FAERS Safety Report 20959620 (Version 3)
Quarter: 2023Q1

REPORT INFORMATION
  Report Type: Report from Study
  Country: US (occurrence: US)
  Receive Date: 20220614
  Receipt Date: 20230125
  Transmission Date: 20230417
  Serious: Yes (Life-Threatening, Other)
  Sender: FDA-Public Use
  Company Number: US-GILEAD-2022-0583852

PATIENT
  Age: 53 Year
  Sex: Female
  Weight: 111.4 kg

DRUGS (4)
  1. REMDESIVIR [Suspect]
     Active Substance: REMDESIVIR
     Indication: COVID-19
     Dosage: 100 MG, QD
     Route: 042
     Dates: start: 20211128, end: 20211203
  2. REMDESIVIR [Suspect]
     Active Substance: REMDESIVIR
     Dosage: 200 MG, ONCE PRIOR TO RANDOMIZATION
     Route: 042
     Dates: start: 20211128, end: 20211128
  3. CYCLOSPORINE [Suspect]
     Active Substance: CYCLOSPORINE
     Indication: COVID-19
     Dosage: 250 MG, BID
     Route: 050
     Dates: start: 20211130, end: 20211205
  4. COVID-19 VACCINE [Concomitant]
     Dosage: UNK
     Dates: start: 20211119

REACTIONS (2)
  - Haematoma [Recovered/Resolved]
  - Hypoxia [Recovered/Resolved]

NARRATIVE: CASE EVENT DATE: 20211202
